APPROVED DRUG PRODUCT: PENBRITIN
Active Ingredient: AMPICILLIN/AMPICILLIN TRIHYDRATE
Strength: EQ 250MG BASE
Dosage Form/Route: CAPSULE;ORAL
Application: A060908 | Product #001
Applicant: WYETH AYERST LABORATORIES
Approved: Approved Prior to Jan 1, 1982 | RLD: No | RS: No | Type: DISCN